FAERS Safety Report 14670380 (Version 1)
Quarter: 2018Q1

REPORT INFORMATION
  Report Type: Report from Study
  Country: IT (occurrence: IT)
  Receive Date: 20180322
  Receipt Date: 20180322
  Transmission Date: 20180509
  Serious: Yes (Hospitalization, Other)
  Sender: FDA-Public Use
  Company Number: IT-PFIZER INC-2018114966

PATIENT
  Age: 74 Year
  Sex: Female

DRUGS (8)
  1. DENIBAN [Concomitant]
     Active Substance: AMISULPRIDE
     Dosage: 1 DF, UNK
     Route: 048
  2. LAMICTAL [Concomitant]
     Active Substance: LAMOTRIGINE
     Dosage: UNK
     Route: 048
  3. LORAZEPAM. [Concomitant]
     Active Substance: LORAZEPAM
     Dosage: 2.5 MG, UNK
     Route: 048
  4. LOBIDIUR [Concomitant]
     Active Substance: HYDROCHLOROTHIAZIDE\NEBIVOLOL HYDROCHLORIDE
     Dosage: 1 DF, UNK
     Route: 048
  5. PREGABALIN. [Concomitant]
     Active Substance: PREGABALIN
     Dosage: 150 MG, UNK
     Route: 048
  6. ASCRIPTIN [Interacting]
     Active Substance: ASPIRIN
     Indication: PLATELET AGGREGATION INHIBITION
     Dosage: 300 MG, 1X/DAY
     Route: 048
     Dates: start: 20110101, end: 20180118
  7. FULCRO [Concomitant]
     Active Substance: FENOFIBRATE
     Dosage: 1 DF, UNK
     Route: 048
  8. SERTRALINE HCL [Suspect]
     Active Substance: SERTRALINE HYDROCHLORIDE
     Indication: DEPRESSION
     Dosage: 100 MG, 1X/DAY
     Route: 048

REACTIONS (3)
  - Subarachnoid haemorrhage [Recovering/Resolving]
  - Drug interaction [Unknown]
  - Subdural haematoma [Recovering/Resolving]

NARRATIVE: CASE EVENT DATE: 20180118
